FAERS Safety Report 5758456-8 (Version None)
Quarter: 2008Q2

REPORT INFORMATION
  Report Type: 
  Country: None (occurrence: None)
  Receive Date: 20080507
  Receipt Date: 20070913
  Transmission Date: 20081010
  Serious: Yes (Other)
  Sender: FDA-Public Use
  Company Number: 237832K07USA

PATIENT
  Age: 56 Year
  Sex: Male

DRUGS (2)
  1. REBIF [Suspect]
     Indication: MULTIPLE SCLEROSIS
     Dates: start: 20061201
  2. COPAXONE [Suspect]
     Dosage: 20 MG
     Dates: end: 20070802

REACTIONS (2)
  - MULTIPLE SCLEROSIS RELAPSE [None]
  - PARALYSIS [None]
